FAERS Safety Report 5764005-0 (Version None)
Quarter: 2008Q2

REPORT INFORMATION
  Report Type: 
  Country: None (occurrence: None)
  Receive Date: 20080609
  Receipt Date: 20080505
  Transmission Date: 20081010
  Serious: No
  Sender: FDA-Public Use
  Company Number: 002#1#2008-00431

PATIENT
  Sex: Male

DRUGS (3)
  1. NEUPRO [Suspect]
     Indication: PARKINSON'S DISEASE
     Dosage: 6MG/24H,1 IN 1 D, TRANSDERMAL
     Route: 062
  2. LEVODOPA [Concomitant]
  3. AZILECT [Concomitant]

REACTIONS (1)
  - PARKINSON'S DISEASE [None]
